FAERS Safety Report 23600953 (Version 1)
Quarter: 2024Q1

REPORT INFORMATION
  Report Type: Spontaneous
  Country: CH (occurrence: CH)
  Receive Date: 20240306
  Receipt Date: 20240306
  Transmission Date: 20240409
  Serious: Yes (Other)
  Sender: FDA-Public Use
  Company Number: CH-AMGEN-CHESP2024043101

PATIENT
  Age: 44 Year
  Sex: Male

DRUGS (2)
  1. XGEVA [Suspect]
     Active Substance: DENOSUMAB
     Indication: Fibrous histiocytoma
     Dosage: 120 MILLIGRAM, QMO
     Route: 065
     Dates: start: 202005
  2. XGEVA [Suspect]
     Active Substance: DENOSUMAB
     Indication: Off label use

REACTIONS (3)
  - Chondrosarcoma [Unknown]
  - Drug effective for unapproved indication [Unknown]
  - Off label use [Unknown]

NARRATIVE: CASE EVENT DATE: 20200101
